FAERS Safety Report 9617021 (Version 1)
Quarter: 2013Q4

REPORT INFORMATION
  Report Type: Spontaneous
  Country: US (occurrence: None)
  Receive Date: 20131011
  Receipt Date: 20131011
  Transmission Date: 20140711
  Serious: Yes (Death)
  Sender: FDA-Public Use
  Company Number: None

PATIENT
  Age: 49 Year
  Sex: Male
  Weight: 74.84 kg

DRUGS (1)
  1. AMBIEN [Suspect]

REACTIONS (3)
  - Completed suicide [None]
  - Gun shot wound [None]
  - Somnambulism [None]
